FAERS Safety Report 13302310 (Version 1)
Quarter: 2017Q1

REPORT INFORMATION
  Report Type: Spontaneous
  Country: TW (occurrence: TW)
  Receive Date: 20170307
  Receipt Date: 20170307
  Transmission Date: 20170428
  Serious: Yes (Hospitalization)
  Sender: FDA-Public Use
  Company Number: TW-SA-2017SA034463

PATIENT
  Age: 58 Year
  Sex: Female

DRUGS (3)
  1. GLUCOBAY [Suspect]
     Active Substance: ACARBOSE
     Indication: SUICIDE ATTEMPT
     Dosage: 62 TABLETS OF 50 MG
     Route: 065
  2. GLIBENCLAMIDE [Suspect]
     Active Substance: GLYBURIDE
     Indication: SUICIDE ATTEMPT
     Dosage: 20 TABLETS OF 5 MG
     Route: 065
  3. METFORMIN [Suspect]
     Active Substance: METFORMIN HYDROCHLORIDE
     Indication: SUICIDE ATTEMPT
     Dosage: 110 TABLETS OF 500 MG
     Route: 065

REACTIONS (16)
  - Respiratory rate increased [Recovering/Resolving]
  - Coma scale abnormal [Recovering/Resolving]
  - Renal impairment [Recovering/Resolving]
  - Lactic acidosis [Recovering/Resolving]
  - Anion gap increased [Recovering/Resolving]
  - Blood potassium increased [Recovering/Resolving]
  - Heart rate increased [Recovering/Resolving]
  - Suicide attempt [Recovering/Resolving]
  - Blood bicarbonate decreased [Recovering/Resolving]
  - Blood pH decreased [Recovering/Resolving]
  - Blood urea increased [Recovering/Resolving]
  - PCO2 decreased [Recovering/Resolving]
  - Blood creatinine increased [Recovered/Resolved]
  - Intentional overdose [Recovering/Resolving]
  - Blood pressure decreased [Recovering/Resolving]
  - Body temperature decreased [Recovering/Resolving]
